FAERS Safety Report 5282446-5 (Version None)
Quarter: 2007Q1

REPORT INFORMATION
  Report Type: 
  Country: None (occurrence: None)
  Receive Date: 20070326
  Receipt Date: 20070314
  Transmission Date: 20070707
  Serious: Yes (Other)
  Sender: FDA-Public Use
  Company Number: B0462966A

PATIENT
  Age: 53 Year
  Sex: Female

DRUGS (2)
  1. PAXIL [Suspect]
     Dosage: 20  MG/SEE DOSAGE TEXT/ORAL
     Route: 048
  2. TRAMADOL HCL [Suspect]
     Dosage: 200 MG/SEE DOSAGE TEXT/ORAL
     Route: 048

REACTIONS (14)
  - ABNORMAL BEHAVIOUR [None]
  - AFFECT LABILITY [None]
  - BLOOD CREATINE PHOSPHOKINASE INCREASED [None]
  - CLONUS [None]
  - DELUSION OF GRANDEUR [None]
  - DEPRESSED LEVEL OF CONSCIOUSNESS [None]
  - DYSARTHRIA [None]
  - GRAND MAL CONVULSION [None]
  - INAPPROPRIATE AFFECT [None]
  - MANIA [None]
  - MYDRIASIS [None]
  - PAIN [None]
  - PRESSURE OF SPEECH [None]
  - SEROTONIN SYNDROME [None]
